FAERS Safety Report 25061656 (Version 1)
Quarter: 2025Q1

REPORT INFORMATION
  Report Type: Spontaneous
  Country: US (occurrence: US)
  Receive Date: 20250311
  Receipt Date: 20250311
  Transmission Date: 20250409
  Serious: No
  Sender: AUROBINDO
  Company Number: US-AUROBINDO-AUR-APL-2024-033892

PATIENT
  Age: 71 Year
  Sex: Male
  Weight: 72.1 kg

DRUGS (1)
  1. AMOXICILLIN\CLAVULANATE POTASSIUM [Suspect]
     Active Substance: AMOXICILLIN\CLAVULANATE POTASSIUM
     Indication: Sinusitis
     Dosage: UNK UNK, TWO TIMES A DAY, 02 MEDICATION PER DAY (ONE  IN 12 HOURS)
     Route: 065
     Dates: start: 20240629

REACTIONS (4)
  - Drug ineffective [Unknown]
  - Wrong technique in product usage process [Unknown]
  - Product solubility abnormal [Unknown]
  - Product residue present [Unknown]

NARRATIVE: CASE EVENT DATE: 20240630
